FAERS Safety Report 10958217 (Version 2)
Quarter: 2015Q2

REPORT INFORMATION
  Report Type: Report from Study
  Country: US (occurrence: US)
  Receive Date: 20150326
  Receipt Date: 20150408
  Transmission Date: 20150821
  Serious: Yes (Hospitalization)
  Sender: FDA-Public Use
  Company Number: US-ACTELION-A-NJ2014-110398

PATIENT
  Age: 32 Year
  Sex: Male

DRUGS (3)
  1. OXYGEN. [Concomitant]
     Active Substance: OXYGEN
  2. HEPARIN [Concomitant]
     Active Substance: HEPARIN SODIUM
  3. VELETRI [Suspect]
     Active Substance: EPOPROSTENOL
     Indication: PULMONARY HYPERTENSION
     Dosage: 32 UNK, UNK
     Route: 042
     Dates: start: 20130311

REACTIONS (12)
  - Catheter site inflammation [Unknown]
  - Dyspnoea [Unknown]
  - Dry skin [Unknown]
  - Fall [Unknown]
  - Catheter site erythema [Unknown]
  - Catheter site discharge [Unknown]
  - Drug dose omission [Unknown]
  - Catheter site haemorrhage [Unknown]
  - Catheter site pruritus [Unknown]
  - Device related infection [Unknown]
  - Device dislocation [Unknown]
  - Catheter site pain [Unknown]

NARRATIVE: CASE EVENT DATE: 20141210
